FAERS Safety Report 5484898-4 (Version None)
Quarter: 2007Q4

REPORT INFORMATION
  Report Type: 
  Country: None (occurrence: None)
  Receive Date: 20071010
  Receipt Date: 20070925
  Transmission Date: 20080405
  Serious: Yes (Hospitalization)
  Sender: FDA-Public Use
  Company Number: B0489746A

PATIENT
  Age: 86 Year
  Sex: Male

DRUGS (2)
  1. DIGOXIN [Suspect]
  2. ACE INHIBITOR (FORMULATION UNKNOWN) (ACE INHIBITOR) [Suspect]

REACTIONS (1)
  - HYPERKALAEMIA [None]
